FAERS Safety Report 4712267-0 (Version None)
Quarter: 2005Q3

REPORT INFORMATION
  Report Type: 
  Country: None (occurrence: None)
  Receive Date: 20050712
  Receipt Date: 20050708
  Transmission Date: 20060218
  Serious: Yes (Other)
  Sender: FDA-Public Use
  Company Number: US-GLAXOSMITHKLINE-B0387146A

PATIENT
  Age: 60 Year
  Sex: Male
  Weight: 85 kg

DRUGS (4)
  1. AVANDIA [Suspect]
     Dosage: 4MG TWICE PER DAY
     Route: 048
     Dates: start: 20050501
  2. INSULINE [Concomitant]
     Route: 065
     Dates: end: 20050706
  3. GLUCOPHAGE [Concomitant]
     Dosage: 500MG FOUR TIMES PER DAY
     Route: 048
  4. LIPANOR [Concomitant]
     Dosage: 1UNIT PER DAY
     Route: 048

REACTIONS (3)
  - ANAEMIA [None]
  - DRUG ADMINISTRATION ERROR [None]
  - FATIGUE [None]
